FAERS Safety Report 10714137 (Version 3)
Quarter: 2016Q2

REPORT INFORMATION
  Report Type: Spontaneous
  Country: CO (occurrence: CO)
  Receive Date: 20150115
  Receipt Date: 20160503
  Transmission Date: 20160815
  Serious: Yes (Other)
  Sender: FDA-Public Use
  Company Number: CO-PFIZER INC-2015015193

PATIENT
  Age: 56 Year
  Sex: Female

DRUGS (6)
  1. SYMBICORT [Concomitant]
     Active Substance: BUDESONIDE\FORMOTEROL FUMARATE DIHYDRATE
     Dosage: UNK
  2. XANAX [Suspect]
     Active Substance: ALPRAZOLAM
     Dosage: 1 DF, 1X/DAY
     Route: 048
  3. LAMOTRIGINA EG [Concomitant]
     Dosage: UNK
  4. MEDROL [Suspect]
     Active Substance: METHYLPREDNISOLONE
     Indication: BRONCHITIS
     Dosage: UNK
     Route: 048
     Dates: start: 20141215
  5. MEDROL [Suspect]
     Active Substance: METHYLPREDNISOLONE
     Indication: ASTHMA
  6. QUETIAPINE. [Concomitant]
     Active Substance: QUETIAPINE
     Dosage: UNK

REACTIONS (5)
  - Bronchitis [Not Recovered/Not Resolved]
  - Oropharyngeal pain [Not Recovered/Not Resolved]
  - Aphonia [Not Recovered/Not Resolved]
  - Bipolar disorder [Not Recovered/Not Resolved]
  - Asthma [Not Recovered/Not Resolved]

NARRATIVE: CASE EVENT DATE: 2015
